FAERS Safety Report 19982738 (Version 1)
Quarter: 2021Q4

REPORT INFORMATION
  Report Type: Spontaneous
  Country: US (occurrence: US)
  Receive Date: 20211020
  Receipt Date: 20211020
  Transmission Date: 20220303
  Serious: Yes (Hospitalization)
  Sender: FDA-Public Use
  Company Number: None

PATIENT
  Sex: Female

DRUGS (1)
  1. STELARA [Suspect]
     Active Substance: USTEKINUMAB
     Indication: Crohn^s disease
     Dosage: ?          OTHER DOSE:1 SYR;OTHER FREQUENCY:Q8WK;
     Route: 058
     Dates: start: 20180130

REACTIONS (2)
  - Nephrolithiasis [None]
  - Drug ineffective [None]
